FAERS Safety Report 7445795-8 (Version None)
Quarter: 2011Q2

REPORT INFORMATION
  Report Type: 
  Country: None (occurrence: None)
  Receive Date: 20110429
  Receipt Date: 20110426
  Transmission Date: 20111010
  Serious: Yes (Death, Hospitalization)
  Sender: FDA-Public Use
  Company Number: ZW-ABBOTT-11P-190-0721825-00

PATIENT
  Sex: Female

DRUGS (3)
  1. COTRIM [Concomitant]
     Indication: PRODUCT USED FOR UNKNOWN INDICATION
     Dates: start: 20041230
  2. ALUVIA TABLETS [Suspect]
     Indication: HIV INFECTION
     Route: 048
     Dates: start: 20110117
  3. RALTEGRAVIR [Concomitant]
     Indication: HIV INFECTION
     Dates: start: 20110117

REACTIONS (4)
  - GENITAL LESION [None]
  - DIARRHOEA [None]
  - WEIGHT DECREASED [None]
  - ORAL DISORDER [None]
